FAERS Safety Report 12592682 (Version 3)
Quarter: 2017Q2

REPORT INFORMATION
  Report Type: Spontaneous
  Country: US (occurrence: US)
  Receive Date: 20160726
  Receipt Date: 20170516
  Transmission Date: 20170830
  Serious: No
  Sender: FDA-Public Use
  Company Number: US-PFIZER INC-2016351164

PATIENT
  Age: 43 Year
  Sex: Male
  Weight: 68.93 kg

DRUGS (2)
  1. XALKORI [Suspect]
     Active Substance: CRIZOTINIB
     Dosage: 200 MG, 2X/DAY
     Route: 048
  2. XALKORI [Suspect]
     Active Substance: CRIZOTINIB
     Indication: NON-SMALL CELL LUNG CANCER
     Dosage: 200 MG, 2X/DAY
     Route: 048
     Dates: start: 20141201

REACTIONS (2)
  - Neoplasm swelling [Recovering/Resolving]
  - Hepatic enzyme increased [Unknown]
